FAERS Safety Report 9323845 (Version 1)
Quarter: 2013Q2

REPORT INFORMATION
  Report Type: Spontaneous
  Country: US (occurrence: None)
  Receive Date: 20130529
  Receipt Date: 20130529
  Transmission Date: 20140414
  Serious: Yes (Other)
  Sender: FDA-Public Use
  Company Number: TIR-02052

PATIENT
  Sex: Female

DRUGS (1)
  1. TIROSINT [Suspect]
     Indication: HYPOTHYROIDISM

REACTIONS (1)
  - Renal impairment [None]
